FAERS Safety Report 9740315 (Version 1)
Quarter: 2013Q4

REPORT INFORMATION
  Report Type: Spontaneous
  Country: DE (occurrence: DE)
  Receive Date: 20131209
  Receipt Date: 20131209
  Transmission Date: 20140711
  Serious: Yes (Hospitalization, Other)
  Sender: FDA-Public Use
  Company Number: DE-PFIZER INC-2013347127

PATIENT
  Age: 61 Year
  Sex: Male

DRUGS (15)
  1. LYRICA [Suspect]
     Dosage: 200 MG, DAILY
     Route: 048
     Dates: start: 20130308, end: 20130309
  2. PREDNISOLONE [Suspect]
     Dosage: UNK
     Route: 048
     Dates: start: 20130312
  3. AMINEURIN [Suspect]
     Dosage: 25 MG, DAILY
     Route: 048
     Dates: start: 20130308, end: 20130309
  4. NORSPAN [Suspect]
     Dosage: 10 UG, DAILY
     Route: 061
     Dates: start: 20130308, end: 20130309
  5. ALFA-CALCIFEROL [Concomitant]
     Dosage: 0.5 UG, UNK
     Route: 048
     Dates: end: 20130315
  6. XARELTO [Concomitant]
     Dosage: 15 MG, DAILY, FOR A LONGER PERIOD
     Route: 048
  7. RAMIPLUS [Concomitant]
     Dosage: 2.5/12.5 MG DAILY, FOR A LONGER PERIOD
     Route: 048
  8. RAMIPRIL [Concomitant]
     Dosage: 2.5 MG, DAILY, FOR A LONGER PERIOD
     Route: 048
  9. BISOPROLOL [Concomitant]
     Dosage: 5 MG, DAILY, FOR A LONGER PERIOD
     Route: 048
  10. DEKRISTOL [Concomitant]
     Dosage: 20000 IU, DAILY
     Dates: start: 20130302, end: 20130316
  11. ALLOPURINOL [Concomitant]
     Dosage: 300 MG, UNK, FOR A LONGER PERIOD
     Route: 048
  12. PANTOPRAZOL [Concomitant]
     Dosage: 40 MG, DAILY, FOR A LONGER PERIOD
     Route: 048
  13. TOREM [Concomitant]
     Dosage: 10 MG, DAILY, FOR A LONGER PERIOD
     Route: 048
  14. FOLSAN [Concomitant]
     Dosage: 0.4 MG, DAILY, FOR A LONGER PERIOD
     Route: 048
  15. NOVAMINOSULFON [Concomitant]
     Dosage: 2000 MG, DAILY
     Route: 048
     Dates: start: 20120822

REACTIONS (9)
  - Delirium [Recovered/Resolved]
  - Hallucination, visual [Unknown]
  - Disorientation [Unknown]
  - Dysarthria [Unknown]
  - Muscle spasms [Unknown]
  - Dry mouth [Unknown]
  - Laryngitis [Unknown]
  - Vocal cord polyp [Unknown]
  - Electroencephalogram abnormal [Unknown]
